FAERS Safety Report 20356634 (Version 3)
Quarter: 2022Q4

REPORT INFORMATION
  Report Type: Spontaneous
  Country: US (occurrence: US)
  Receive Date: 20220120
  Receipt Date: 20221230
  Transmission Date: 20230113
  Serious: No
  Sender: FDA-Public Use
  Company Number: US-ELI_LILLY_AND_COMPANY-US202201007182

PATIENT
  Age: 77 Year
  Sex: Male

DRUGS (10)
  1. HUMALOG MIX75/25 [Suspect]
     Active Substance: INSULIN LISPRO
     Indication: Product used for unknown indication
     Dosage: 15 U, UNKNOWN
     Route: 065
     Dates: start: 2012
  2. HUMALOG MIX75/25 [Suspect]
     Active Substance: INSULIN LISPRO
     Indication: Product used for unknown indication
     Dosage: 15 U, UNKNOWN
     Route: 065
     Dates: start: 2012
  3. HUMALOG MIX75/25 [Suspect]
     Active Substance: INSULIN LISPRO
     Dosage: 15 U, UNKNOWN
     Route: 065
  4. HUMALOG MIX75/25 [Suspect]
     Active Substance: INSULIN LISPRO
     Dosage: 15 U, UNKNOWN
     Route: 065
  5. HUMALOG MIX75/25 [Suspect]
     Active Substance: INSULIN LISPRO
     Dosage: 7 U, PRN  (5 EXTRA UNITS)
     Route: 065
     Dates: start: 2012
  6. HUMALOG MIX75/25 [Suspect]
     Active Substance: INSULIN LISPRO
     Dosage: 7 U, PRN  (5 EXTRA UNITS)
     Route: 065
     Dates: start: 2012
  7. HUMALOG MIX75/25 [Suspect]
     Active Substance: INSULIN LISPRO
     Dosage: 13 U, PRN  (5 EXTRA UNITS)
     Route: 065
     Dates: start: 2012
  8. HUMALOG MIX75/25 [Suspect]
     Active Substance: INSULIN LISPRO
     Dosage: 13 U, PRN  (5 EXTRA UNITS)
     Route: 065
     Dates: start: 2012
  9. HUMALOG MIX75/25 [Suspect]
     Active Substance: INSULIN LISPRO
     Dosage: 11 U, PRN  (5 EXTRA UNITS)
     Route: 065
     Dates: start: 2012
  10. HUMALOG MIX75/25 [Suspect]
     Active Substance: INSULIN LISPRO
     Dosage: 11 U, PRN  (5 EXTRA UNITS)
     Route: 065
     Dates: start: 2012

REACTIONS (5)
  - Blood glucose increased [Unknown]
  - Blood glucose increased [Recovering/Resolving]
  - Blood glucose increased [Unknown]
  - Blood glucose decreased [Unknown]
  - Drug ineffective [Unknown]

NARRATIVE: CASE EVENT DATE: 20210101
